FAERS Safety Report 15802793 (Version 2)
Quarter: 2019Q2

REPORT INFORMATION
  Report Type: Report from Study
  Country: BR (occurrence: BR)
  Receive Date: 20190109
  Receipt Date: 20190507
  Transmission Date: 20190711
  Serious: Yes (Other)
  Sender: FDA-Public Use
  Company Number: PHHY2019BR001357

PATIENT
  Age: 72 Year
  Sex: Male
  Weight: 78 kg

DRUGS (12)
  1. AMIODARONE [Concomitant]
     Active Substance: AMIODARONE
     Indication: ARRHYTHMIA
     Dosage: 1 DF, QD (STARTED BEFORE 2016)
     Route: 048
  2. ZINPASS [Concomitant]
     Indication: ABDOMINAL HERNIA
     Dosage: 1 DF, QD
     Route: 048
     Dates: start: 2016
  3. DOMPERIDONE [Concomitant]
     Active Substance: DOMPERIDONE
     Indication: ABDOMINAL HERNIA
     Dosage: 1 DF, QD
     Route: 048
     Dates: start: 2016
  4. CALCIUM [Suspect]
     Active Substance: CALCIUM
     Indication: OSTEOPOROSIS
     Dosage: UNK
     Route: 065
  5. ACLASTA [Suspect]
     Active Substance: ZOLEDRONIC ACID
     Dosage: 1 DF, Q12MO
     Route: 042
     Dates: start: 20180327
  6. CLOPIDOGREL BISULFATE. [Concomitant]
     Active Substance: CLOPIDOGREL BISULFATE
     Indication: CEREBROVASCULAR ACCIDENT
     Dosage: 1 DF, QD
     Route: 048
     Dates: start: 2016
  7. DEXLANSOPRAZOLE [Concomitant]
     Active Substance: DEXLANSOPRAZOLE
     Indication: ABDOMINAL HERNIA
     Dosage: 1 DF, QD
     Route: 048
     Dates: start: 2016
  8. ACLASTA [Suspect]
     Active Substance: ZOLEDRONIC ACID
     Dosage: 1 DF, Q12MO
     Route: 042
     Dates: start: 20190103
  9. LOSARTAN POTASSIUM. [Concomitant]
     Active Substance: LOSARTAN POTASSIUM
     Indication: HYPERTENSION
     Dosage: 1 DF, PRN (ONLY IF BLOOD PRESSURE INCREASES)
     Route: 048
     Dates: start: 2016
  10. NPH INSULIN [Concomitant]
     Active Substance: INSULIN BEEF
     Indication: DIABETES MELLITUS
     Dosage: 2 DF (25 IU IN THE MORNING AND 12 IU IN THE NIGHT), QD
     Route: 058
  11. ACLASTA [Suspect]
     Active Substance: ZOLEDRONIC ACID
     Indication: OSTEOPOROSIS
     Dosage: 1 DF, Q12MO
     Route: 042
     Dates: start: 20170331
  12. TRAYENTA [Concomitant]
     Active Substance: LINAGLIPTIN
     Indication: DIABETES MELLITUS
     Dosage: 1 DF, QD
     Route: 048
     Dates: end: 2016

REACTIONS (11)
  - Renal impairment [Not Recovered/Not Resolved]
  - Labyrinthitis [Recovered/Resolved]
  - Malaise [Recovered/Resolved]
  - Nephrolithiasis [Recovered/Resolved]
  - Blood urine present [Not Recovered/Not Resolved]
  - Mass [Unknown]
  - Renal haemorrhage [Recovered/Resolved]
  - Renal pain [Unknown]
  - Renal neoplasm [Recovered/Resolved]
  - Abdominal pain [Recovered/Resolved]
  - Renal disorder [Unknown]

NARRATIVE: CASE EVENT DATE: 201711
